FAERS Safety Report 8465675 (Version 2)
Quarter: 2013Q1

REPORT INFORMATION
  Report Type: Spontaneous
  Country: US (occurrence: None)
  Receive Date: 20120313
  Receipt Date: 20121203
  Transmission Date: 20140127
  Serious: Yes (Other)
  Sender: FDA-Public Use
  Company Number: 2012-1159

PATIENT
  Age: 58 Year
  Sex: Female
  Weight: 89.79 kg

DRUGS (8)
  1. SOMATULINE DEPOT [Suspect]
     Indication: ACROMEGALY
     Dosage: (1 IN 28 D)
     Route: 058
     Dates: start: 20110510
  2. METOPROLOL TARTRATE [Concomitant]
  3. FUROSEMIDE (FUROSEMIDE) [Concomitant]
  4. FERROUS SULFATE [Concomitant]
  5. SENSIPAR [Concomitant]
  6. ULORIC [Concomitant]
  7. CALCITRIOL [Concomitant]
  8. CRESTOR [Concomitant]

REACTIONS (10)
  - Bone disorder [None]
  - Joint effusion [None]
  - Weight increased [None]
  - Pain in extremity [None]
  - Influenza like illness [None]
  - Constipation [None]
  - Nausea [None]
  - Vomiting [None]
  - Blood glucose decreased [None]
  - Renal neoplasm [None]
